FAERS Safety Report 9976321 (Version 1)
Quarter: 2014Q1

REPORT INFORMATION
  Report Type: Report from Study
  Country: US (occurrence: US)
  Receive Date: 20140306
  Receipt Date: 20140306
  Transmission Date: 20141002
  Serious: No
  Sender: FDA-Public Use
  Company Number: US-ABBVIE-13P-163-1167216-00

PATIENT
  Age: 36 Year
  Sex: Female

DRUGS (8)
  1. HUMIRA [Suspect]
     Indication: PSORIATIC ARTHROPATHY
     Dates: start: 20121126, end: 201301
  2. HUMIRA [Suspect]
     Dates: start: 201301
  3. MEDROL [Concomitant]
     Indication: EYE DISORDER
  4. XANAX [Concomitant]
     Indication: INSOMNIA
     Dosage: AT NIGHT
  5. DICYCLOMINE [Concomitant]
     Dates: end: 201304
  6. CELEXA [Concomitant]
     Indication: DEPRESSION
     Dates: end: 201304
  7. MELATONIN [Concomitant]
     Indication: INSOMNIA
     Dates: end: 201304
  8. MULTIVITAMIN [Concomitant]
     Indication: VITAMIN SUPPLEMENTATION
     Dates: end: 201304

REACTIONS (7)
  - Drug dose omission [Not Recovered/Not Resolved]
  - Condition aggravated [Not Recovered/Not Resolved]
  - Condition aggravated [Not Recovered/Not Resolved]
  - Swollen tear duct [Not Recovered/Not Resolved]
  - Dry eye [Not Recovered/Not Resolved]
  - Injection site pain [Not Recovered/Not Resolved]
  - Drug ineffective [Not Recovered/Not Resolved]
